FAERS Safety Report 5521659-1 (Version None)
Quarter: 2007Q4

REPORT INFORMATION
  Report Type: 
  Country: None (occurrence: None)
  Receive Date: 20071115
  Receipt Date: 20071030
  Transmission Date: 20080405
  Serious: Yes (Other)
  Sender: FDA-Public Use
  Company Number: 8026829

PATIENT
  Age: 19 Year
  Sex: Female
  Weight: 50 kg

DRUGS (4)
  1. XUSAL [Suspect]
     Dosage: ONCE PO
     Route: 048
     Dates: start: 20070912
  2. PARACETAMOL [Suspect]
     Dosage: ONCE PO
     Route: 048
     Dates: start: 20070912
  3. ASPIRIN [Suspect]
     Dosage: ONCE PO
     Route: 048
     Dates: start: 20070912
  4. PASPERTIN [Suspect]
     Dosage: ONCE PO
     Route: 048
     Dates: start: 20070912

REACTIONS (4)
  - GASTROINTESTINAL MOTILITY DISORDER [None]
  - NAUSEA [None]
  - SOMNOLENCE [None]
  - SUICIDE ATTEMPT [None]
